FAERS Safety Report 7497961-3 (Version None)
Quarter: 2011Q2

REPORT INFORMATION
  Report Type: 
  Country: None (occurrence: None)
  Receive Date: 20110524
  Receipt Date: 20110512
  Transmission Date: 20111010
  Serious: No
  Sender: FDA-Public Use
  Company Number: US-BIOGENIDEC-2010BI022128

PATIENT
  Age: 50 Year
  Sex: Female

DRUGS (1)
  1. TYSABRI [Suspect]
     Indication: MULTIPLE SCLEROSIS
     Route: 042
     Dates: start: 20071218

REACTIONS (8)
  - URINE ODOUR ABNORMAL [None]
  - MOBILITY DECREASED [None]
  - FATIGUE [None]
  - MICTURITION URGENCY [None]
  - SECONDARY PROGRESSIVE MULTIPLE SCLEROSIS [None]
  - HYPOAESTHESIA [None]
  - WEIGHT INCREASED [None]
  - GAIT DISTURBANCE [None]
